FAERS Safety Report 8213303-X (Version None)
Quarter: 2012Q1

REPORT INFORMATION
  Report Type: 
  Country: None (occurrence: None)
  Receive Date: 20120315
  Receipt Date: 20120309
  Transmission Date: 20120608
  Serious: Yes (Other)
  Sender: FDA-Public Use
  Company Number: PHHY2011IE109254

PATIENT
  Sex: Female

DRUGS (3)
  1. GILENYA [Suspect]
     Dosage: 0.5 MG, UNK
     Route: 048
     Dates: start: 20111124, end: 20111210
  2. ORAL CONTRACEPTIVE NOS [Concomitant]
  3. GILENYA [Suspect]
     Dosage: 0.5 MG, UNK
     Route: 048

REACTIONS (3)
  - RASH GENERALISED [None]
  - EXFOLIATIVE RASH [None]
  - RASH ERYTHEMATOUS [None]
